FAERS Safety Report 8207940-6 (Version None)
Quarter: 2012Q1

REPORT INFORMATION
  Report Type: 
  Country: None (occurrence: None)
  Receive Date: 20120314
  Receipt Date: 20120309
  Transmission Date: 20120608
  Serious: No
  Sender: FDA-Public Use
  Company Number: US-PFIZER INC-2012063701

PATIENT
  Sex: Female
  Weight: 68.027 kg

DRUGS (2)
  1. ATORVASTATIN CALCIUM [Suspect]
     Dosage: 40 MG, DAILY
     Dates: start: 20120201, end: 20120201
  2. LORTAB [Suspect]
     Indication: PAIN
     Dosage: UNK

REACTIONS (4)
  - MYALGIA [None]
  - HEADACHE [None]
  - DRUG ADMINISTRATION ERROR [None]
  - NAUSEA [None]
